FAERS Safety Report 4918713-1 (Version None)
Quarter: 2006Q1

REPORT INFORMATION
  Report Type: 
  Country: None (occurrence: None)
  Receive Date: 20060221
  Receipt Date: 20060221
  Transmission Date: 20060701
  Serious: Yes (Hospitalization, Other)
  Sender: FDA-Public Use
  Company Number: None

PATIENT
  Sex: Male
  Weight: 67.1324 kg

DRUGS (2)
  1. INVANZ [Suspect]
     Indication: LYMPHADENOPATHY
     Dosage: QD   IV DRIP
     Route: 041
     Dates: start: 20051209, end: 20051212
  2. LAMICTAL [Suspect]
     Indication: SIMPLE PARTIAL SEIZURES
     Dosage: 125MG  BID   PO
     Route: 048
     Dates: start: 20051114, end: 20051223

REACTIONS (3)
  - GRAND MAL CONVULSION [None]
  - LYMPHADENOPATHY [None]
  - RASH PAPULAR [None]
